FAERS Safety Report 8303522-6 (Version None)
Quarter: 2012Q2

REPORT INFORMATION
  Report Type: 
  Country: None (occurrence: None)
  Receive Date: 20120418
  Receipt Date: 20120405
  Transmission Date: 20120825
  Serious: Yes (Other)
  Sender: FDA-Public Use
  Company Number: DSA_56100_2012

PATIENT
  Sex: Female

DRUGS (1)
  1. FLAGYL [Suspect]
     Indication: PRODUCT USED FOR UNKNOWN INDICATION
     Dosage: (X1 DF TOPICAL), (DF)
     Route: 061

REACTIONS (2)
  - NO ADVERSE EVENT [None]
  - ACCIDENTAL EXPOSURE [None]
